FAERS Safety Report 4586791-8 (Version None)
Quarter: 2005Q1

REPORT INFORMATION
  Report Type: 
  Country: None (occurrence: None)
  Receive Date: 20050215
  Receipt Date: 20030811
  Transmission Date: 20050727
  Serious: Yes (Hospitalization)
  Sender: FDA-Public Use
  Company Number: 177392

PATIENT
  Age: 58 Year
  Sex: Female
  Weight: 90.7194 kg

DRUGS (11)
  1. AVONEX [Suspect]
     Indication: MULTIPLE SCLEROSIS
     Dosage: 30 UG; QW; IM
     Route: 030
     Dates: start: 19960101
  2. SYNTHROID [Concomitant]
  3. GLIPIZIDE [Concomitant]
  4. GLUCOPHAGE [Concomitant]
  5. WELLBUTRIN [Concomitant]
  6. METHOTREXATE [Concomitant]
  7. ELAVIL [Concomitant]
  8. ZYRTEC [Concomitant]
  9. PROTONIX [Concomitant]
  10. TRIMETHOBENZAMIDE [Concomitant]
  11. METHOTREXATE [Concomitant]

REACTIONS (11)
  - ASTHENIA [None]
  - BLOOD CHOLESTEROL INCREASED [None]
  - CEREBROVASCULAR ACCIDENT [None]
  - DISORIENTATION [None]
  - EMOTIONAL DISTRESS [None]
  - FALL [None]
  - MUSCULAR WEAKNESS [None]
  - MYOCARDIAL INFARCTION [None]
  - SPINAL CORD INFECTION [None]
  - URINARY INCONTINENCE [None]
  - WEIGHT DECREASED [None]
